FAERS Safety Report 9873184 (Version 2)
Quarter: 2014Q1

REPORT INFORMATION
  Report Type: Other
  Country: US (occurrence: US)
  Receive Date: 20140206
  Receipt Date: 20140206
  Transmission Date: 20141002
  Serious: Yes (Disabling)
  Sender: FDA-Public Use
  Company Number: US-ACORDA-ACO_100940_2013

PATIENT
  Sex: Male
  Weight: 116.1 kg

DRUGS (7)
  1. AMPYRA [Suspect]
     Indication: GAIT DISTURBANCE
     Dosage: 10 MG, BID
     Route: 048
     Dates: start: 2010
  2. TECFIDERA [Suspect]
     Indication: MULTIPLE SCLEROSIS
     Dosage: UNK, BID
     Route: 048
     Dates: start: 201309
  3. LYRICA [Concomitant]
     Indication: MULTIPLE SCLEROSIS
     Dosage: 50 MG, TID
     Route: 048
     Dates: start: 20131209
  4. LUNESTA [Concomitant]
     Indication: INSOMNIA
     Dosage: 3 MG, ONE AT BEDTIME
     Route: 048
     Dates: start: 20131209
  5. ENABLEX [Concomitant]
     Indication: PRODUCT USED FOR UNKNOWN INDICATION
     Dosage: 15 MG, UNK
     Route: 065
  6. METFORMIN ER [Concomitant]
     Indication: PRODUCT USED FOR UNKNOWN INDICATION
     Dosage: 500 MG, UNK
     Route: 065
  7. CIALIS [Concomitant]
     Indication: PRODUCT USED FOR UNKNOWN INDICATION
     Dosage: 5 MG, UNK
     Route: 065

REACTIONS (6)
  - Walking aid user [Not Recovered/Not Resolved]
  - Fatigue [Recovered/Resolved]
  - Somnolence [Recovered/Resolved]
  - Gait disturbance [Unknown]
  - Multiple sclerosis [Unknown]
  - Drug dose omission [Unknown]
